FAERS Safety Report 26142632 (Version 1)
Quarter: 2025Q4

REPORT INFORMATION
  Report Type: Spontaneous
  Country: CN (occurrence: CN)
  Receive Date: 20251211
  Receipt Date: 20251211
  Transmission Date: 20260118
  Serious: Yes (Other)
  Sender: GE HEALTHCARE
  Company Number: None

PATIENT
  Age: 34 Year
  Sex: Female
  Weight: 70 kg

DRUGS (1)
  1. OMNIPAQUE [Suspect]
     Active Substance: IOHEXOL
     Indication: Hysterosalpingogram
     Dosage: 13 ML, TOTAL
     Route: 065
     Dates: start: 20251113

REACTIONS (6)
  - Urethral haemorrhage [Recovering/Resolving]
  - Vulval haemorrhage [Recovering/Resolving]
  - Vulval ulceration [Recovering/Resolving]
  - Vulvovaginal pain [Recovering/Resolving]
  - Tenderness [Recovering/Resolving]
  - Contrast media allergy [Recovering/Resolving]

NARRATIVE: CASE EVENT DATE: 20251115
